FAERS Safety Report 25170949 (Version 4)
Quarter: 2025Q4

REPORT INFORMATION
  Report Type: Spontaneous
  Country: EU (occurrence: EU)
  Receive Date: 20250408
  Receipt Date: 20251110
  Transmission Date: 20260118
  Serious: Yes (Other)
  Sender: ALEXION PHARMACEUTICALS
  Company Number: EU-ASTRAZENECA-202504EEA003082FI

PATIENT
  Age: 44 Year
  Sex: Female
  Weight: 65 kg

DRUGS (8)
  1. LYNPARZA [Suspect]
     Active Substance: OLAPARIB
     Dosage: 300 MILLIGRAM, Q12H. 300 MG + 300 MG
     Route: 065
     Dates: start: 20250104, end: 20250307
  2. LYNPARZA [Suspect]
     Active Substance: OLAPARIB
     Dosage: 250 MG + 250 MG
     Dates: start: 20250402, end: 20250424
  3. LYNPARZA [Suspect]
     Active Substance: OLAPARIB
     Dosage: 200 MG + 200 MG
  4. PACLITAXEL [Concomitant]
     Active Substance: PACLITAXEL
     Dosage: UNK
     Route: 065
  5. DOCETAXEL [Concomitant]
     Active Substance: DOCETAXEL
     Dosage: UNK
     Route: 065
  6. CARBOPLATIN [Concomitant]
     Active Substance: CARBOPLATIN
     Dosage: UNK
     Route: 065
  7. LEVETIRACETAM [Concomitant]
     Active Substance: LEVETIRACETAM
     Indication: Epilepsy
     Route: 065
  8. INNOHEP [Concomitant]
     Active Substance: TINZAPARIN SODIUM
     Dosage: UNK
     Route: 065

REACTIONS (10)
  - Haemoglobin decreased [Recovering/Resolving]
  - Anaemia [Recovering/Resolving]
  - Cerebral venous sinus thrombosis [Recovered/Resolved with Sequelae]
  - Pyrexia [Recovered/Resolved]
  - Malaise [Unknown]
  - Myalgia [Unknown]
  - Seizure [Unknown]
  - Liver disorder [Unknown]
  - Restless legs syndrome [Unknown]
  - Hypoaesthesia [Unknown]

NARRATIVE: CASE EVENT DATE: 20250324
